FAERS Safety Report 7753905-8 (Version None)
Quarter: 2011Q3

REPORT INFORMATION
  Report Type: 
  Country: None (occurrence: None)
  Receive Date: 20110915
  Receipt Date: 20110909
  Transmission Date: 20111222
  Serious: Yes (Hospitalization)
  Sender: FDA-Public Use
  Company Number: DE-B.I. PHARMACEUTICALS,INC./RIDGEFIELD-2011-DE-04868DE

PATIENT
  Sex: Male
  Weight: 79 kg

DRUGS (7)
  1. TORSEMIDE [Concomitant]
     Dosage: 20 MG
  2. ACYCLOVIR [Concomitant]
     Indication: HERPES ZOSTER
     Dosage: 400 MG
  3. DEXAMETHASONE [Concomitant]
  4. CHEMOTHERAPEUTICS [Concomitant]
     Indication: MONOCLONAL GAMMOPATHY
  5. PRADAXA [Suspect]
     Indication: CEREBROVASCULAR ACCIDENT
  6. VELCADE [Concomitant]
     Dosage: 1X WEEKLY 1 MG
  7. EUTHYROX 200 [Concomitant]

REACTIONS (6)
  - LOSS OF CONSCIOUSNESS [None]
  - DEHYDRATION [None]
  - CYANOSIS [None]
  - POOR QUALITY SLEEP [None]
  - LIMB DISCOMFORT [None]
  - BURNING SENSATION [None]
